FAERS Safety Report 6869713-6 (Version None)
Quarter: 2010Q3

REPORT INFORMATION
  Report Type: 
  Country: None (occurrence: None)
  Receive Date: 20100722
  Receipt Date: 20080818
  Transmission Date: 20110219
  Serious: No
  Sender: FDA-Public Use
  Company Number: US-PFIZER INC-2008069406

PATIENT
  Sex: Male
  Weight: 59.87 kg

DRUGS (6)
  1. CHANTIX [Suspect]
     Indication: SMOKING CESSATION THERAPY
     Dates: start: 20080816
  2. NEXIUM [Concomitant]
  3. SUSTIVA [Concomitant]
  4. ALL OTHER THERAPEUTIC PRODUCTS [Concomitant]
  5. ZOLPIDEM TARTRATE [Concomitant]
  6. ATENOLOL [Concomitant]

REACTIONS (1)
  - NAUSEA [None]
